FAERS Safety Report 12602390 (Version 2)
Quarter: 2016Q4

REPORT INFORMATION
  Report Type: Report from Study
  Country: US (occurrence: US)
  Receive Date: 20160728
  Receipt Date: 20161110
  Transmission Date: 20170207
  Serious: Yes (Death, Hospitalization)
  Sender: FDA-Public Use
  Company Number: US-CELGENEUS-USA-2016076447

PATIENT
  Age: 81 Year
  Sex: Male
  Weight: 81.27 kg

DRUGS (2)
  1. THALOMID [Suspect]
     Active Substance: THALIDOMIDE
     Route: 048
     Dates: start: 20110909, end: 20120120
  2. THALOMID [Suspect]
     Active Substance: THALIDOMIDE
     Indication: PLASMA CELL MYELOMA
     Route: 048
     Dates: start: 20110627

REACTIONS (2)
  - Plasma cell myeloma [Fatal]
  - Mental status changes [Recovering/Resolving]

NARRATIVE: CASE EVENT DATE: 20120202
